FAERS Safety Report 8964954 (Version 2)
Quarter: 2012Q4

REPORT INFORMATION
  Report Type: 
  Country: SE (occurrence: SE)
  Receive Date: 20121213
  Receipt Date: 20121226
  Transmission Date: 20130627
  Serious: Yes (Other)
  Sender: FDA-Public Use
  Company Number: SE-ROCHE-1165414

PATIENT
  Age: 50 Year
  Sex: Female

DRUGS (11)
  1. ROACTEMRA [Suspect]
     Indication: TEMPORAL ARTERITIS
     Dosage: RoActemra concentrae for solution for infusion 20mg/ml
     Route: 042
     Dates: start: 20121004, end: 20121120
  2. ALVEDON [Concomitant]
  3. INSULATARD [Concomitant]
     Dosage: suspension for injection
     Route: 065
  4. METFORMIN [Concomitant]
  5. METOPROLOL [Concomitant]
  6. FLUOXETIN [Concomitant]
  7. AMLODIPIN [Concomitant]
  8. TROMBYL [Concomitant]
     Route: 065
  9. PREDNISOLON [Concomitant]
  10. GLYTRIN [Concomitant]
  11. KALCIPOS-D [Concomitant]
     Dosage: chewable tablet
     Route: 065

REACTIONS (4)
  - Nausea [Recovered/Resolved]
  - Vomiting [Recovered/Resolved]
  - Diarrhoea [Recovered/Resolved]
  - Dizziness [Recovered/Resolved]
